FAERS Safety Report 11706233 (Version 1)
Quarter: 2015Q4

REPORT INFORMATION
  Report Type: Report from Study
  Country: US (occurrence: US)
  Receive Date: 20151106
  Receipt Date: 20151106
  Transmission Date: 20160304
  Serious: Yes (Hospitalization, Other)
  Sender: FDA-Public Use
  Company Number: US-AMAG PHARMACEUTICALS, INC.-AMAG201500708

PATIENT

DRUGS (4)
  1. MAKENA [Suspect]
     Active Substance: HYDROXYPROGESTERONE CAPROATE
     Indication: PREMATURE DELIVERY
     Dosage: 250 MG, WEEKLY
     Dates: start: 20150609, end: 20150616
  2. MACROBID [Concomitant]
     Active Substance: NITROFURANTOIN\NITROFURANTOIN MONOHYDRATE
     Indication: URINARY TRACT INFECTION
     Dosage: 100 MG, BID
     Dates: start: 20150320, end: 20150415
  3. PRENATAL VITAMINS [Concomitant]
     Active Substance: VITAMINS
     Dosage: 1 TABS, UNK
     Dates: start: 20150415, end: 20150618
  4. IRON SULFATE [Concomitant]
     Active Substance: FERROUS SULFATE ANHYDROUS
     Dosage: 1 TABS, UNK
     Dates: start: 20150415, end: 20150618

REACTIONS (9)
  - Imminent abortion [None]
  - Maternal exposure timing unspecified [None]
  - Premature delivery [Recovered/Resolved]
  - Stillbirth [None]
  - Breech delivery [None]
  - Premature rupture of membranes [Recovered/Resolved]
  - Haematocrit decreased [None]
  - Haemoglobin decreased [None]
  - Premature separation of placenta [Recovered/Resolved]

NARRATIVE: CASE EVENT DATE: 20150618
